FAERS Safety Report 4832642-3 (Version None)
Quarter: 2005Q4

REPORT INFORMATION
  Report Type: 
  Country: None (occurrence: None)
  Receive Date: 20051117
  Receipt Date: 20051109
  Transmission Date: 20060501
  Serious: Yes (Hospitalization)
  Sender: FDA-Public Use
  Company Number: TPA2005A01315

PATIENT
  Age: 61 Year
  Sex: Male
  Weight: 95.3 kg

DRUGS (5)
  1. PIOGLITAZONE HCL [Suspect]
     Indication: GLUCOSE TOLERANCE IMPAIRED
     Dosage: 1 IN 1 D, PER ORAL
     Route: 048
     Dates: start: 20041027
  2. WARFARIN SODIUM [Concomitant]
  3. LIPITOR [Concomitant]
  4. DOXAZOSIN (DOXAZOSIN) [Concomitant]
  5. LOTREL [Concomitant]

REACTIONS (5)
  - AMNESIA [None]
  - CEREBROVASCULAR ACCIDENT [None]
  - DRUG LEVEL BELOW THERAPEUTIC [None]
  - HAEMATOCRIT DECREASED [None]
  - INTERNATIONAL NORMALISED RATIO DECREASED [None]
